FAERS Safety Report 8832451 (Version 1)
Quarter: 2012Q4

REPORT INFORMATION
  Report Type: Spontaneous
  Country: US (occurrence: None)
  Receive Date: 20121005
  Receipt Date: 20121005
  Transmission Date: 20130627
  Serious: Yes (Hospitalization)
  Sender: FDA-Public Use
  Company Number: None

PATIENT
  Age: 78 Year
  Sex: Male
  Weight: 59 kg

DRUGS (2)
  1. ZOLEDRONIC ACID [Suspect]
     Indication: BONE METASTASES
     Dosage: 3 MG Other IV
     Route: 042
     Dates: start: 20110401, end: 20110831
  2. DENOSUMAB [Suspect]
     Dosage: 120 MG Other SQ
     Route: 058
     Dates: start: 20110921, end: 20120127

REACTIONS (4)
  - Osteonecrosis of jaw [None]
  - Refusal of treatment by patient [None]
  - Fistula [None]
  - Osteomyelitis chronic [None]
